FAERS Safety Report 8078515-7 (Version None)
Quarter: 2012Q1

REPORT INFORMATION
  Report Type: 
  Country: None (occurrence: None)
  Receive Date: 20120124
  Receipt Date: 20120117
  Transmission Date: 20120608
  Serious: Yes (Hospitalization, Other)
  Sender: FDA-Public Use
  Company Number: 2006-144661-NL

PATIENT
  Age: 25 Year
  Sex: Female
  Weight: 83.9154 kg

DRUGS (10)
  1. COUMADIN [Suspect]
     Indication: CONTRACEPTION
     Dates: start: 20060501
  2. AMOXICILLIN [Concomitant]
  3. NEURONTIN [Concomitant]
  4. APAP W/ CODEINE [Concomitant]
  5. NUVARING [Suspect]
     Indication: CONTRACEPTION
     Dosage: QM, VAG
     Route: 067
     Dates: start: 20060129, end: 20060525
  6. CIPRODEX [Concomitant]
  7. NOREL SR [Concomitant]
  8. AZITHROMYCIN [Concomitant]
  9. PROPRANOLOL [Concomitant]
  10. ACETAMINOPHEN [Concomitant]

REACTIONS (63)
  - AMNESIA [None]
  - EAR INFECTION [None]
  - DEPRESSION [None]
  - HYDRONEPHROSIS [None]
  - REFUSAL OF TREATMENT BY PATIENT [None]
  - HEPATIC STEATOSIS [None]
  - VOMITING [None]
  - TREMOR [None]
  - CARDIOVASCULAR DISORDER [None]
  - TRANSVERSE SINUS THROMBOSIS [None]
  - HYPOACUSIS [None]
  - CALCULUS URETERIC [None]
  - DRUG DOSE OMISSION [None]
  - BACK PAIN [None]
  - BLOOD TRIGLYCERIDES INCREASED [None]
  - LOW DENSITY LIPOPROTEIN INCREASED [None]
  - INTERMITTENT CLAUDICATION [None]
  - COUGH [None]
  - DEHYDRATION [None]
  - ANGINA PECTORIS [None]
  - SCLERAL HAEMORRHAGE [None]
  - HAEMATURIA [None]
  - NEPHROLITHIASIS [None]
  - ABDOMINAL PAIN UPPER [None]
  - DIARRHOEA [None]
  - ASTHENIA [None]
  - HYPERHIDROSIS [None]
  - DEEP VEIN THROMBOSIS [None]
  - BLOOD PRESSURE INCREASED [None]
  - BLOOD CHOLESTEROL INCREASED [None]
  - SACROILIITIS [None]
  - ABDOMINAL PAIN LOWER [None]
  - HAEMORRHAGIC OVARIAN CYST [None]
  - HYDROURETER [None]
  - EPISTAXIS [None]
  - BREAST HAEMATOMA [None]
  - RHINORRHOEA [None]
  - CHEST PAIN [None]
  - HYPERCOAGULATION [None]
  - ARRHYTHMIA [None]
  - ABNORMAL SENSATION IN EYE [None]
  - COSTOCHONDRITIS [None]
  - ERYTHEMA [None]
  - AMENORRHOEA [None]
  - ALLERGIC PHARYNGITIS [None]
  - GENERAL PHYSICAL CONDITION ABNORMAL [None]
  - CEREBRAL INFARCTION [None]
  - CONDITION AGGRAVATED [None]
  - HAEMORRHAGIC TRANSFORMATION STROKE [None]
  - NAUSEA [None]
  - MENORRHAGIA [None]
  - MUSCLE SPASMS [None]
  - TREATMENT NONCOMPLIANCE [None]
  - BLOOD DISORDER [None]
  - MIGRAINE [None]
  - PERIPHERAL VASCULAR DISORDER [None]
  - HEADACHE [None]
  - CYSTITIS HAEMORRHAGIC [None]
  - PAIN IN EXTREMITY [None]
  - ONYCHALGIA [None]
  - RECTAL HAEMORRHAGE [None]
  - BACTERIURIA [None]
  - URINARY TRACT INFECTION [None]
